FAERS Safety Report 18094585 (Version 1)
Quarter: 2020Q3

REPORT INFORMATION
  Report Type: Spontaneous
  Country: NL (occurrence: NL)
  Receive Date: 20200731
  Receipt Date: 20200731
  Transmission Date: 20201103
  Serious: Yes (Congenital Anomaly, Other)
  Sender: FDA-Public Use
  Company Number: NL-QUAGEN-2020QUALIT00057

PATIENT

DRUGS (4)
  1. CLOZAPINE. [Suspect]
     Active Substance: CLOZAPINE
     Indication: FOETAL EXPOSURE DURING PREGNANCY
     Route: 064
  2. PROMETHAZINE HYDROCHLORIDE TABLETS, 12.5 MG [Suspect]
     Active Substance: PROMETHAZINE HYDROCHLORIDE
     Indication: FOETAL EXPOSURE DURING PREGNANCY
     Route: 064
  3. FLUPENTIXOL [Suspect]
     Active Substance: FLUPENTIXOL
     Indication: FOETAL EXPOSURE DURING PREGNANCY
     Route: 064
  4. SERTRALINE [Suspect]
     Active Substance: SERTRALINE HYDROCHLORIDE
     Indication: FOETAL EXPOSURE DURING PREGNANCY
     Route: 064

REACTIONS (1)
  - Talipes [Unknown]
